FAERS Safety Report 20912128 (Version 1)
Quarter: 2022Q2

REPORT INFORMATION
  Report Type: Other
  Country: GB (occurrence: GB)
  Receive Date: 20220603
  Receipt Date: 20220603
  Transmission Date: 20220721
  Serious: Yes (Hospitalization, Other)
  Sender: FDA-Public Use
  Company Number: GB-PIERREL PHARMA S.R.L-2022PIR00016

PATIENT
  Sex: Female

DRUGS (1)
  1. ARTICAINE\EPINEPHRINE [Suspect]
     Active Substance: ARTICAINE\EPINEPHRINE
     Dosage: 1.1 ML VIA BUCCAL INFILTRATION
     Route: 002
     Dates: start: 20220330, end: 20220330

REACTIONS (2)
  - Respiration abnormal [Recovered/Resolved]
  - Loss of consciousness [Recovered/Resolved]

NARRATIVE: CASE EVENT DATE: 20220330
